FAERS Safety Report 10412618 (Version 1)
Quarter: 2014Q3

REPORT INFORMATION
  Report Type: Spontaneous
  Country: BR (occurrence: None)
  Receive Date: 20140825
  Receipt Date: 20140825
  Transmission Date: 20150326
  Serious: Yes (Death, Other)
  Sender: FDA-Public Use
  Company Number: 2014JUB00093

PATIENT
  Age: 67 Year
  Sex: Female

DRUGS (3)
  1. PREDNISONE. [Suspect]
     Active Substance: PREDNISONE
     Indication: RENAL TRANSPLANT
  2. MYCOPHENOLIC ACID [Suspect]
     Active Substance: MYCOPHENOLIC ACID
     Indication: RENAL TRANSPLANT
  3. TACROLIMUS. [Suspect]
     Active Substance: TACROLIMUS
     Indication: RENAL TRANSPLANT

REACTIONS (4)
  - Mucocutaneous leishmaniasis [None]
  - Thrombophlebitis [None]
  - Septic shock [None]
  - Pneumonia [None]
